FAERS Safety Report 14458884 (Version 2)
Quarter: 2018Q2

REPORT INFORMATION
  Report Type: Report from Study
  Country: US (occurrence: US)
  Receive Date: 20180130
  Receipt Date: 20180417
  Transmission Date: 20180711
  Serious: Yes (Hospitalization)
  Sender: FDA-Public Use
  Company Number: US-ASTELLAS-2018US005380

PATIENT
  Age: 60 Year
  Sex: Male

DRUGS (1)
  1. ISAVUCONAZOLE [Suspect]
     Active Substance: ISAVUCONAZOLE
     Indication: ASPERGILLUS INFECTION
     Route: 048
     Dates: start: 20170724, end: 20180404

REACTIONS (3)
  - Treatment noncompliance [Unknown]
  - Pneumonia [Unknown]
  - Thrombosis [Unknown]

NARRATIVE: CASE EVENT DATE: 201711
